FAERS Safety Report 5600227-7 (Version None)
Quarter: 2008Q1

REPORT INFORMATION
  Report Type: 
  Country: None (occurrence: None)
  Receive Date: 20080123
  Receipt Date: 20080116
  Transmission Date: 20080703
  Serious: Yes (Hospitalization)
  Sender: FDA-Public Use
  Company Number: US-AVENTIS-200718140US

PATIENT
  Sex: Female
  Weight: 105 kg

DRUGS (9)
  1. LANTUS [Suspect]
  2. LANTUS [Suspect]
     Dosage: DOSE: 23 UNITS AT 8AM AND 23 UNITS AT 8 PM
     Route: 051
  3. OPTICLIK GREY [Suspect]
     Dosage: DOSE: UNK
  4. NORVASC                            /00972401/ [Concomitant]
     Dosage: DOSE: UNK
  5. ATENOLOL [Concomitant]
     Dosage: DOSE: UNK
  6. ACTONEL [Concomitant]
     Dosage: DOSE: UNK
  7. VIT D [Concomitant]
     Dosage: DOSE: UNK
  8. VITAMINS [Concomitant]
     Dosage: DOSE: UNK
  9. ANTIVERT [Concomitant]
     Dosage: DOSE: UNK

REACTIONS (2)
  - ANXIETY [None]
  - BLOOD GLUCOSE INCREASED [None]
